FAERS Safety Report 24179926 (Version 1)
Quarter: 2024Q3

REPORT INFORMATION
  Report Type: Report from Study
  Country: JP (occurrence: JP)
  Receive Date: 20240806
  Receipt Date: 20240806
  Transmission Date: 20241016
  Serious: Yes (Other)
  Sender: PFIZER
  Company Number: JP-PFIZER INC-202400230852

PATIENT

DRUGS (1)
  1. PALBOCICLIB [Suspect]
     Active Substance: PALBOCICLIB

REACTIONS (1)
  - Myelosuppression [Unknown]
